FAERS Safety Report 6503097-8 (Version None)
Quarter: 2009Q4

REPORT INFORMATION
  Report Type: 
  Country: None (occurrence: None)
  Receive Date: 20091217
  Receipt Date: 20091215
  Transmission Date: 20100525
  Serious: Yes (Other)
  Sender: FDA-Public Use
  Company Number: JP-ROCHE-674750

PATIENT
  Age: 22 Year
  Sex: Female

DRUGS (2)
  1. VALGANCICLOVIR HCL [Suspect]
     Indication: CYTOMEGALOVIRUS INFECTION
     Dosage: DRUG: VALIXA TABLETS 450MG (VALGANCICLOVIR HYDROCHLORIDE), FREQUENCY: PER DAY
     Route: 048
     Dates: start: 20091101, end: 20091101
  2. PROGRAF [Suspect]
     Route: 065

REACTIONS (1)
  - HYPONATRAEMIA [None]
